FAERS Safety Report 5860581-8 (Version None)
Quarter: 2008Q3

REPORT INFORMATION
  Report Type: 
  Country: None (occurrence: None)
  Receive Date: 20080827
  Receipt Date: 20070912
  Transmission Date: 20090109
  Serious: No
  Sender: FDA-Public Use
  Company Number: US-ABBOTT-07P-163-0417085-00

PATIENT
  Sex: Male
  Weight: 81.72 kg

DRUGS (7)
  1. COATED PDS [Suspect]
     Indication: BLOOD TRIGLYCERIDES INCREASED
     Route: 048
     Dates: start: 20070815, end: 20070818
  2. COATED PDS [Suspect]
     Route: 048
     Dates: start: 20070701, end: 20070814
  3. COATED PDS [Suspect]
     Route: 048
     Dates: start: 20070819
  4. KLOR-CON [Concomitant]
     Indication: BLOOD PRESSURE
  5. PRAZOSIN HCL [Concomitant]
     Indication: BLOOD PRESSURE
  6. LEVOTHYROXINE SODIUM [Concomitant]
     Indication: BLOOD PRESSURE
  7. SPIRONOLACTONE [Concomitant]
     Indication: BLOOD PRESSURE

REACTIONS (1)
  - FLUSHING [None]
